FAERS Safety Report 12522946 (Version 2)
Quarter: 2016Q3

REPORT INFORMATION
  Report Type: Spontaneous
  Country: US (occurrence: US)
  Receive Date: 20160701
  Receipt Date: 20160715
  Transmission Date: 20161109
  Serious: Yes (Other)
  Sender: FDA-Public Use
  Company Number: US-ABBVIE-16P-163-1662781-00

PATIENT
  Age: 53 Year
  Sex: Female
  Weight: 54.03 kg

DRUGS (26)
  1. SYNTHROID [Suspect]
     Active Substance: LEVOTHYROXINE SODIUM
     Indication: HYPOTHYROIDISM
     Route: 065
  2. PROPRANOLOL [Concomitant]
     Active Substance: PROPRANOLOL\PROPRANOLOL HYDROCHLORIDE
     Indication: HEADACHE
     Route: 065
  3. LYRICA [Suspect]
     Active Substance: PREGABALIN
     Indication: FIBROMYALGIA
     Route: 065
  4. IMITREX [Concomitant]
     Active Substance: SUMATRIPTAN SUCCINATE
     Dosage: SPRAY; ONLY TAKEN WHEN FEELS LIKE GOING TO LOSE VISION
     Route: 045
  5. AMITRIPTYLINE [Concomitant]
     Active Substance: AMITRIPTYLINE
     Indication: INSOMNIA
  6. PROLIA [Concomitant]
     Active Substance: DENOSUMAB
     Indication: PRODUCT USED FOR UNKNOWN INDICATION
     Route: 050
  7. ACETAMINOPHEN\HYDROCODONE BITARTRATE [Suspect]
     Active Substance: ACETAMINOPHEN\HYDROCODONE BITARTRATE
     Indication: PAIN
     Dosage: 7.5/325 AT NIGHT
     Route: 065
  8. LYRICA [Suspect]
     Active Substance: PREGABALIN
     Indication: NERVOUS SYSTEM DISORDER
  9. TOPAMAX [Concomitant]
     Active Substance: TOPIRAMATE
     Indication: MIGRAINE
  10. PREDNISONE. [Suspect]
     Active Substance: PREDNISONE
     Dosage: DOSE DECREASED
     Route: 065
  11. IMITREX [Concomitant]
     Active Substance: SUMATRIPTAN SUCCINATE
     Indication: VISUAL IMPAIRMENT
     Dosage: SPRAY; ONLY TAKEN WHEN FEELS LIKE GOING TO LOSE VISION
     Route: 045
  12. VITAMIN D [Concomitant]
     Active Substance: CHOLECALCIFEROL
     Indication: PRODUCT USED FOR UNKNOWN INDICATION
     Route: 065
  13. PROPRANOLOL [Concomitant]
     Active Substance: PROPRANOLOL\PROPRANOLOL HYDROCHLORIDE
     Indication: BLOOD PRESSURE MEASUREMENT
     Route: 065
  14. CLONAZEPAM. [Concomitant]
     Active Substance: CLONAZEPAM
     Indication: INSOMNIA
     Dosage: AT NIGHT
     Route: 065
  15. CLONAZEPAM. [Concomitant]
     Active Substance: CLONAZEPAM
     Indication: DYSKINESIA
     Dosage: AT NIGHT
     Route: 065
  16. TOPAMAX [Concomitant]
     Active Substance: TOPIRAMATE
     Indication: VISUAL IMPAIRMENT
  17. BONIVA [Suspect]
     Active Substance: IBANDRONATE SODIUM
     Indication: PRODUCT USED FOR UNKNOWN INDICATION
     Route: 065
  18. CYMBALTA [Concomitant]
     Active Substance: DULOXETINE HYDROCHLORIDE
     Indication: MUSCLE SPASMS
     Dosage: 60 MG IN MORNING 30 MG AT NIGHT
     Route: 065
  19. REQUIP [Concomitant]
     Active Substance: ROPINIROLE HYDROCHLORIDE
     Indication: RESTLESS LEGS SYNDROME
     Dosage: AT NIGHT
     Route: 065
  20. REQUIP [Concomitant]
     Active Substance: ROPINIROLE HYDROCHLORIDE
     Dosage: AT NIGHT
     Route: 065
  21. AMITRIPTYLINE [Concomitant]
     Active Substance: AMITRIPTYLINE
     Indication: ANXIETY
     Route: 065
  22. BACLOFEN. [Concomitant]
     Active Substance: BACLOFEN
     Indication: MUSCLE RELAXANT THERAPY
     Route: 065
  23. PREDNISONE. [Suspect]
     Active Substance: PREDNISONE
     Indication: PRODUCT USED FOR UNKNOWN INDICATION
     Dosage: DOSE DECREASED IN RESPONSE TO AE
     Route: 065
  24. VITAMIN D [Concomitant]
     Active Substance: CHOLECALCIFEROL
     Route: 065
  25. CYMBALTA [Concomitant]
     Active Substance: DULOXETINE HYDROCHLORIDE
     Indication: DEPRESSION
     Dosage: 60 MG IN MORNING 30 MG AT NIGHT (TAKING 7-8 YEARS)
     Route: 065
  26. AMITRIPTYLINE [Concomitant]
     Active Substance: AMITRIPTYLINE
     Indication: DEPRESSION

REACTIONS (18)
  - Central pain syndrome [Not Recovered/Not Resolved]
  - Osteitis [Unknown]
  - Upper limb fracture [Unknown]
  - Pain [Unknown]
  - Foot fracture [Unknown]
  - Arthropathy [Unknown]
  - Fracture [Unknown]
  - Muscle spasms [Unknown]
  - Impaired work ability [Unknown]
  - Upper limb fracture [Unknown]
  - Osteopenia [Unknown]
  - Bone disorder [Unknown]
  - Fall [Unknown]
  - Impaired driving ability [Unknown]
  - Body height decreased [Unknown]
  - Drug ineffective [Unknown]
  - Vasodilatation [Unknown]
  - Muscular weakness [Unknown]

NARRATIVE: CASE EVENT DATE: 201510
